FAERS Safety Report 7607309-9 (Version None)
Quarter: 2011Q3

REPORT INFORMATION
  Report Type: 
  Country: None (occurrence: None)
  Receive Date: 20110713
  Receipt Date: 20110707
  Transmission Date: 20111222
  Serious: Yes (Other)
  Sender: FDA-Public Use
  Company Number: US-PFIZER INC-2011154463

PATIENT
  Age: 35 Year
  Sex: Female

DRUGS (1)
  1. SOLU-MEDROL [Suspect]
     Dosage: UNK

REACTIONS (4)
  - TRANSIENT ISCHAEMIC ATTACK [None]
  - ENDOCARDITIS ENTEROCOCCAL [None]
  - MEDICAL DEVICE COMPLICATION [None]
  - HYPOGAMMAGLOBULINAEMIA [None]
